FAERS Safety Report 7927137-4 (Version None)
Quarter: 2011Q4

REPORT INFORMATION
  Report Type: 
  Country: None (occurrence: None)
  Receive Date: 20111118
  Receipt Date: 20111110
  Transmission Date: 20120403
  Serious: Yes (Hospitalization)
  Sender: FDA-Public Use
  Company Number: US-UCBSA-045563

PATIENT
  Sex: Female
  Weight: 72.57 kg

DRUGS (8)
  1. VIMPAT [Suspect]
     Dosage: DOSE: 150MG, 100MG; FREQUENCY: TWICE A DAY IN THE MORNING AND EVENING
     Route: 048
     Dates: start: 20110818, end: 20110924
  2. DILANTIN [Concomitant]
     Indication: CONVULSION
     Dosage: IN MORNING AND AT NIGHT
     Route: 048
  3. DEPAKOTE ER [Concomitant]
     Dosage: MORNING AND NIGHT
     Route: 048
  4. PHENOBARBITAL TAB [Concomitant]
     Indication: CONVULSION
     Dosage: DOSE PER INTAKE: 30 MG, 60 MG (AM, PM)
     Route: 048
  5. VIMPAT [Suspect]
     Indication: GRAND MAL CONVULSION
     Route: 048
     Dates: start: 20110925, end: 20110926
  6. LACTULOSE [Concomitant]
     Indication: AMMONIA INCREASED
     Dosage: DOSE PER INTAKE: 2 TABLESPOONS
     Route: 048
  7. VALIUM [Concomitant]
     Indication: CONVULSION
     Dosage: AS NEEDED
     Route: 048
  8. ZONIGRAN [Concomitant]
     Indication: CONVULSION
     Dosage: AT NIGHT ONLY
     Route: 048
     Dates: start: 20111108

REACTIONS (4)
  - PYREXIA [None]
  - INSOMNIA [None]
  - CONVULSION [None]
  - MANIA [None]
